FAERS Safety Report 7087120-0 (Version None)
Quarter: 2010Q4

REPORT INFORMATION
  Report Type: 
  Country: None (occurrence: None)
  Receive Date: 20101106
  Receipt Date: 20101025
  Transmission Date: 20110411
  Serious: No
  Sender: FDA-Public Use
  Company Number: US-WYE-H18345910

PATIENT
  Sex: Female
  Weight: 86.26 kg

DRUGS (4)
  1. PRISTIQ [Suspect]
     Indication: DEPRESSION
     Route: 048
     Dates: start: 20101021
  2. LASIX [Concomitant]
  3. HYDROCODONE [Concomitant]
  4. LORAZEPAM [Concomitant]

REACTIONS (7)
  - CRYING [None]
  - FATIGUE [None]
  - FEELING ABNORMAL [None]
  - MUSCULOSKELETAL STIFFNESS [None]
  - MYALGIA [None]
  - TREMOR [None]
  - UNEVALUABLE EVENT [None]
